FAERS Safety Report 5228316-X (Version None)
Quarter: 2007Q1

REPORT INFORMATION
  Report Type: 
  Country: None (occurrence: None)
  Receive Date: 20070131
  Receipt Date: 20070123
  Transmission Date: 20070707
  Serious: Yes (Death, Life-Threatening, Hospitalization)
  Sender: FDA-Public Use
  Company Number: 2007US000151

PATIENT
  Age: 49 Year
  Sex: Male

DRUGS (1)
  1. AMBISOME [Suspect]
     Indication: FUNGAL INFECTION
     Dosage: RESPIRATORY
     Route: 055
     Dates: start: 20061017

REACTIONS (23)
  - ABDOMINAL DISTENSION [None]
  - ABDOMINAL PAIN [None]
  - ACUTE RESPIRATORY FAILURE [None]
  - ATELECTASIS [None]
  - BLADDER SPASM [None]
  - COMPLICATIONS OF BONE MARROW TRANSPLANT [None]
  - CONSTIPATION [None]
  - DIALYSIS [None]
  - DRUG INEFFECTIVE [None]
  - DYSURIA [None]
  - HAEMATURIA [None]
  - HEPATIC FAILURE [None]
  - HEPATOMEGALY [None]
  - LUNG CONSOLIDATION [None]
  - LUNG INFILTRATION [None]
  - MULTI-ORGAN FAILURE [None]
  - OEDEMA PERIPHERAL [None]
  - PLEURAL EFFUSION [None]
  - PNEUMONIA [None]
  - POLLAKIURIA [None]
  - RASH [None]
  - RENAL FAILURE ACUTE [None]
  - VENOOCCLUSIVE LIVER DISEASE [None]
